FAERS Safety Report 11445422 (Version 2)
Quarter: 2015Q4

REPORT INFORMATION
  Report Type: Spontaneous
  Country: JP (occurrence: JP)
  Receive Date: 20150902
  Receipt Date: 20151123
  Transmission Date: 20160304
  Serious: Yes (Other)
  Sender: FDA-Public Use
  Company Number: JP-009507513-1508JPN006327

PATIENT
  Age: 73 Year
  Sex: Female

DRUGS (14)
  1. CARVEDILOL. [Concomitant]
     Active Substance: CARVEDILOL
     Dosage: 20 MG, BID, AFTER THE BREAKFAST AND SUPPER
     Route: 048
  2. SENNOSIDES. [Concomitant]
     Active Substance: SENNOSIDES
     Dosage: 24 MG, DAILY, AFTER THE SUPPER
     Route: 048
  3. COLCHICINE. [Concomitant]
     Active Substance: COLCHICINE
     Dosage: 0.5 MG, QD, AFTER THE BREAKFAST
     Route: 048
  4. FRANDOL [Concomitant]
     Active Substance: ISOSORBIDE DINITRATE
     Dosage: FORMULATION: TAP, 1 DF, UNK
     Route: 062
  5. PLAVIX [Concomitant]
     Active Substance: CLOPIDOGREL BISULFATE
     Dosage: 75 MG, UNK
     Route: 048
  6. PRAVASTATIN [Concomitant]
     Active Substance: PRAVASTATIN\PRAVASTATIN SODIUM
     Dosage: 10 MG, QD
     Route: 048
  7. ENALAPRIL MALEATE. [Concomitant]
     Active Substance: ENALAPRIL MALEATE
     Dosage: 0.5 DOSAGE FORM DAILY, NON-DIALYSIS DAY AFTER BREAKFAST
     Route: 048
  8. FERRIC CITRATE [Concomitant]
     Active Substance: TETRAFERRIC TRICITRATE DECAHYDRATE
     Dosage: DAILY DOSAGE UNKNOWN. AFTER EACH MEAL
     Route: 048
  9. CUBICIN [Suspect]
     Active Substance: DAPTOMYCIN
     Dosage: DAILY DOSAGE UNKNOWN
     Route: 041
     Dates: start: 20150729
  10. ALFACALCIDOL [Concomitant]
     Active Substance: ALFACALCIDOL
     Dosage: 0.25 MICROGRAM, UNK
     Route: 048
  11. CALCIUM CARBONATE. [Concomitant]
     Active Substance: CALCIUM CARBONATE
     Dosage: THE FOUR TABLETS WAS DIVIDED TO THREE TIMES A DAY AS 1, 1, 2 TABLETS.
     Route: 048
  12. BAYASPIRIN [Concomitant]
     Active Substance: ASPIRIN
     Dosage: 100 MG, UNK
     Route: 048
  13. NICORANDIL [Concomitant]
     Active Substance: NICORANDIL
     Dosage: 15 MG, TID, AFTER EACH MEAL
     Route: 048
  14. NEXIUM [Concomitant]
     Active Substance: ESOMEPRAZOLE MAGNESIUM
     Dosage: 20 MG AFTER THE BREAKFAST
     Route: 048

REACTIONS (1)
  - White blood cell count decreased [Recovered/Resolved]

NARRATIVE: CASE EVENT DATE: 20150812
